FAERS Safety Report 10220895 (Version 2)
Quarter: 2014Q2

REPORT INFORMATION
  Report Type: Spontaneous
  Country: US (occurrence: US)
  Receive Date: 20140606
  Receipt Date: 20140619
  Transmission Date: 20141212
  Serious: Yes (Other)
  Sender: FDA-Public Use
  Company Number: US-JNJFOC-20140515881

PATIENT
  Sex: 0

DRUGS (2)
  1. LEVOFLOXACIN [Suspect]
     Indication: LATENT TUBERCULOSIS
     Route: 065
  2. PYRAZINAMIDE [Suspect]
     Indication: LATENT TUBERCULOSIS
     Route: 065

REACTIONS (1)
  - Transaminases increased [Recovered/Resolved]
